FAERS Safety Report 9709475 (Version 1)
Quarter: 2013Q4

REPORT INFORMATION
  Report Type: Spontaneous
  Country: US (occurrence: US)
  Receive Date: 20131126
  Receipt Date: 20131126
  Transmission Date: 20140711
  Serious: Yes (Hospitalization, Other)
  Sender: FDA-Public Use
  Company Number: US-AMGEN-USASP2013082608

PATIENT
  Age: 60 Year
  Sex: Female

DRUGS (2)
  1. ENBREL [Suspect]
     Indication: PSORIASIS
     Dosage: 50 MG, 2 TIMES/WK
     Route: 065
     Dates: start: 2006, end: 201306
  2. HUMIRA [Concomitant]
     Dosage: UNK
     Dates: start: 2011

REACTIONS (6)
  - Sensory loss [Recovered/Resolved]
  - Abasia [Recovered/Resolved]
  - Blood cholesterol increased [Not Recovered/Not Resolved]
  - Amnesia [Not Recovered/Not Resolved]
  - Liver disorder [Not Recovered/Not Resolved]
  - Psoriasis [Not Recovered/Not Resolved]
